FAERS Safety Report 6653516-1 (Version None)
Quarter: 2010Q1

REPORT INFORMATION
  Report Type: 
  Country: None (occurrence: None)
  Receive Date: 20100326
  Receipt Date: 20100322
  Transmission Date: 20100710
  Serious: Yes (Death)
  Sender: FDA-Public Use
  Company Number: FR-SANOFI-AVENTIS-2010SA016274

PATIENT
  Age: 85 Year
  Sex: Female

DRUGS (3)
  1. KARDEGIC [Interacting]
     Indication: DRUG USE FOR UNKNOWN INDICATION
     Route: 048
     Dates: end: 20100223
  2. PLAVIX [Suspect]
     Indication: DRUG USE FOR UNKNOWN INDICATION
     Route: 048
     Dates: end: 20100223
  3. PREVISCAN [Interacting]
     Indication: DRUG USE FOR UNKNOWN INDICATION
     Route: 048
     Dates: end: 20100223

REACTIONS (3)
  - DRUG INTERACTION [None]
  - INTERNATIONAL NORMALISED RATIO INCREASED [None]
  - SUBDURAL HAEMATOMA [None]
